FAERS Safety Report 23074061 (Version 1)
Quarter: 2023Q4

REPORT INFORMATION
  Report Type: Spontaneous
  Country: US (occurrence: None)
  Receive Date: 20231017
  Receipt Date: 20231017
  Transmission Date: 20240109
  Serious: Yes (Death, Other)
  Sender: FDA-Public Use
  Company Number: 2023A233848

PATIENT

DRUGS (7)
  1. FULVESTRANT [Suspect]
     Active Substance: FULVESTRANT
     Route: 030
     Dates: start: 20181219, end: 20190321
  2. PALBOCICLIB [Suspect]
     Active Substance: PALBOCICLIB
     Route: 048
     Dates: start: 20181227, end: 20190116
  3. PALBOCICLIB [Suspect]
     Active Substance: PALBOCICLIB
     Dates: start: 20190222, end: 20190315
  4. PALBOCICLIB [Suspect]
     Active Substance: PALBOCICLIB
     Dates: start: 20190124, end: 20190214
  5. PALBOCICLIB [Suspect]
     Active Substance: PALBOCICLIB
     Dates: start: 20190322, end: 20190416
  6. EXEMESTANE [Suspect]
     Active Substance: EXEMESTANE
     Dates: start: 20190604, end: 20191223
  7. EVEROLIMUS [Suspect]
     Active Substance: EVEROLIMUS
     Dates: start: 20190604, end: 20191127

REACTIONS (1)
  - Death [Fatal]

NARRATIVE: CASE EVENT DATE: 20191223
